FAERS Safety Report 4401450-X (Version None)
Quarter: 2004Q3

REPORT INFORMATION
  Report Type: 
  Country: None (occurrence: None)
  Receive Date: 20040907
  Receipt Date: 20040510
  Transmission Date: 20050211
  Serious: No
  Sender: FDA-Public Use
  Company Number: US-BRISTOL-MYERS SQUIBB COMPANY-12583142

PATIENT
  Age: 84 Year
  Sex: Female
  Weight: 61 kg

DRUGS (5)
  1. COUMADIN [Suspect]
     Indication: ATRIAL FIBRILLATION
     Dosage: DOSAGE: 3MG AND 4MG ALTERNATING DAILY
     Route: 048
  2. ENSURE [Suspect]
     Dosage: 1 CAN DAILY
  3. MONOPRIL [Concomitant]
     Route: 048
  4. NORVASC [Concomitant]
  5. LANOXIN [Concomitant]
     Dosage: DOSAGE 0.125

REACTIONS (1)
  - OEDEMA PERIPHERAL [None]
